FAERS Safety Report 5376352-5 (Version None)
Quarter: 2007Q3

REPORT INFORMATION
  Report Type: 
  Country: None (occurrence: None)
  Receive Date: 20070702
  Receipt Date: 20070620
  Transmission Date: 20080115
  Serious: Yes (Hospitalization)
  Sender: FDA-Public Use
  Company Number: NO-PFIZER INC-2007033822

PATIENT
  Sex: Female
  Weight: 76 kg

DRUGS (11)
  1. SU-011,248 [Suspect]
     Indication: METASTATIC RENAL CELL CARCINOMA
     Route: 048
  2. PRAVACHOL [Concomitant]
     Route: 048
  3. SELOZOK [Concomitant]
     Route: 048
  4. ADALAT [Concomitant]
     Route: 048
  5. OXYCONTIN [Concomitant]
     Route: 048
  6. LACTULOSE [Concomitant]
     Route: 048
  7. LAXOBERAL [Concomitant]
     Route: 048
  8. DULCOLAX [Concomitant]
     Route: 054
  9. NEXIUM [Concomitant]
     Route: 048
  10. OXYNORM [Concomitant]
  11. SELEXID [Concomitant]
     Route: 048
     Dates: start: 20070429, end: 20070506

REACTIONS (5)
  - BLADDER PERFORATION [None]
  - HAEMORRHAGE URINARY TRACT [None]
  - INFECTION [None]
  - RENAL HAEMORRHAGE [None]
  - URINARY RETENTION [None]
